FAERS Safety Report 14519896 (Version 1)
Quarter: 2018Q1

REPORT INFORMATION
  Report Type: Spontaneous
  Country: KZ (occurrence: KZ)
  Receive Date: 20180212
  Receipt Date: 20180212
  Transmission Date: 20180509
  Serious: Yes (Death)
  Sender: FDA-Public Use
  Company Number: KZ-ASTRAZENECA-2018SE15737

PATIENT
  Age: 65 Year
  Sex: Male

DRUGS (7)
  1. DAXAS [Suspect]
     Active Substance: ROFLUMILAST
     Indication: CHRONIC OBSTRUCTIVE PULMONARY DISEASE
     Dosage: 500.0UG UNKNOWN
     Route: 048
  2. DAXAS [Suspect]
     Active Substance: ROFLUMILAST
     Indication: EMPHYSEMA
     Dosage: 500.0UG UNKNOWN
     Route: 048
  3. DAXAS [Suspect]
     Active Substance: ROFLUMILAST
     Indication: EMPHYSEMA
     Dosage: UNKNOWN
     Route: 048
  4. DAXAS [Suspect]
     Active Substance: ROFLUMILAST
     Indication: CHRONIC OBSTRUCTIVE PULMONARY DISEASE
     Dosage: UNKNOWN
     Route: 048
  5. SPIRIVA [Concomitant]
     Active Substance: TIOTROPIUM BROMIDE MONOHYDRATE
  6. SERETID [Concomitant]
  7. BERODUAL [Concomitant]
     Active Substance: FENOTEROL HYDROBROMIDE\IPRATROPIUM BROMIDE

REACTIONS (3)
  - Diarrhoea [Unknown]
  - Death [Fatal]
  - Tachycardia [Unknown]
